FAERS Safety Report 6384433-2 (Version None)
Quarter: 2009Q4

REPORT INFORMATION
  Report Type: 
  Country: None (occurrence: None)
  Receive Date: 20091001
  Receipt Date: 20090930
  Transmission Date: 20100525
  Serious: Yes (Other)
  Sender: FDA-Public Use
  Company Number: US-PFIZER INC-2008151288

PATIENT
  Sex: Male

DRUGS (1)
  1. ATGAM [Suspect]

REACTIONS (4)
  - GENERAL PHYSICAL HEALTH DETERIORATION [None]
  - IMMUNOSUPPRESSION [None]
  - INFECTION [None]
  - SEPTIC SHOCK [None]
